FAERS Safety Report 8161502-8 (Version None)
Quarter: 2012Q1

REPORT INFORMATION
  Report Type: 
  Country: None (occurrence: None)
  Receive Date: 20120224
  Receipt Date: 20120221
  Transmission Date: 20120608
  Serious: No
  Sender: FDA-Public Use
  Company Number: US-PFIZER INC-2012046712

PATIENT
  Sex: Male
  Weight: 72.562 kg

DRUGS (5)
  1. ATENOLOL [Concomitant]
     Dosage: 20 MG, DAILY
  2. REVLIMID [Concomitant]
     Indication: MULTIPLE MYELOMA
     Dosage: 16 MG, CYCLIC, 3 WEEKS AND 1 WEEK OFF
  3. NIFEDIPINE [Suspect]
     Indication: HYPERTENSION
     Dosage: 30 MG, DAILY
  4. ZOCOR [Concomitant]
     Indication: BLOOD CHOLESTEROL INCREASED
     Dosage: 10 MG, DAILY
  5. DEXAMETHASONE [Concomitant]
     Indication: MULTIPLE MYELOMA
     Dosage: 5 MG, WEEKLY

REACTIONS (4)
  - HYPERHIDROSIS [None]
  - PALPITATIONS [None]
  - MALAISE [None]
  - DRUG INEFFECTIVE [None]
